FAERS Safety Report 18546710 (Version 1)
Quarter: 2020Q4

REPORT INFORMATION
  Report Type: Spontaneous
  Country: BR (occurrence: BR)
  Receive Date: 20201125
  Receipt Date: 20201125
  Transmission Date: 20210114
  Serious: Yes (Hospitalization, Other)
  Sender: FDA-Public Use
  Company Number: NVSC2020BR312268

PATIENT
  Age: 69 Year
  Sex: Female

DRUGS (1)
  1. ANASTROZOLE. [Suspect]
     Active Substance: ANASTROZOLE
     Indication: BREAST CANCER METASTATIC
     Dosage: UNK
     Route: 065
     Dates: start: 201111

REACTIONS (8)
  - Metastases to peritoneum [Unknown]
  - Bone lesion [Unknown]
  - Carbohydrate antigen 125 increased [Unknown]
  - Intestinal obstruction [Unknown]
  - Constipation [Unknown]
  - Abdominal distension [Unknown]
  - Carbohydrate antigen 15-3 increased [Unknown]
  - Metastases to pleura [Unknown]

NARRATIVE: CASE EVENT DATE: 201907
